FAERS Safety Report 22396619 (Version 2)
Quarter: 2023Q2

REPORT INFORMATION
  Report Type: Spontaneous
  Country: US (occurrence: US)
  Receive Date: 20230601
  Receipt Date: 20230609
  Transmission Date: 20230722
  Serious: Yes (Other)
  Sender: FDA-Public Use
  Company Number: US-APIL-2310259US

PATIENT
  Age: 89 Year
  Sex: Male

DRUGS (2)
  1. DURYSTA [Suspect]
     Active Substance: BIMATOPROST
     Indication: Intraocular pressure increased
     Dosage: TIME INTERVAL: AS NECESSARY: 0.01 MG
     Route: 031
     Dates: start: 20230330, end: 20230331
  2. DURYSTA [Suspect]
     Active Substance: BIMATOPROST
     Indication: Glaucoma

REACTIONS (2)
  - Implantation complication [Recovering/Resolving]
  - Product administered at inappropriate site [Recovering/Resolving]

NARRATIVE: CASE EVENT DATE: 20230330
